FAERS Safety Report 14145176 (Version 2)
Quarter: 2018Q2

REPORT INFORMATION
  Report Type: Spontaneous
  Country: US (occurrence: US)
  Receive Date: 20171031
  Receipt Date: 20180402
  Transmission Date: 20180711
  Serious: Yes (Other)
  Sender: FDA-Public Use
  Company Number: US-BAYER-2017-209097

PATIENT
  Sex: Female
  Weight: 72.57 kg

DRUGS (3)
  1. MIRENA [Suspect]
     Active Substance: LEVONORGESTREL
     Indication: CONTRACEPTION
  2. METRONIDAZOLE. [Concomitant]
     Active Substance: METRONIDAZOLE
     Dosage: 500 MG, UNK
     Route: 048
  3. MIRENA [Suspect]
     Active Substance: LEVONORGESTREL
     Indication: CONTRACEPTION
     Dosage: 20 MCG/24HR, CONT
     Route: 015
     Dates: start: 20170407, end: 201707

REACTIONS (7)
  - Vaginal haemorrhage [None]
  - Abdominal pain lower [None]
  - Neuralgia [None]
  - Gastrooesophageal reflux disease [None]
  - Breast pain [None]
  - Menorrhagia [None]
  - Device dislocation [None]

NARRATIVE: CASE EVENT DATE: 2017
